FAERS Safety Report 7418071-7 (Version None)
Quarter: 2011Q2

REPORT INFORMATION
  Report Type: 
  Country: None (occurrence: None)
  Receive Date: 20110415
  Receipt Date: 20110408
  Transmission Date: 20111010
  Serious: Yes (Other)
  Sender: FDA-Public Use
  Company Number: CA-ROCHE-766214

PATIENT
  Sex: Female
  Weight: 60.8 kg

DRUGS (10)
  1. TOCILIZUMAB [Suspect]
     Indication: RHEUMATOID ARTHRITIS
     Route: 042
     Dates: start: 20101027
  2. CODEINE PHOSPHATE [Concomitant]
  3. TIMEROL [Concomitant]
     Dosage: EYE DROPS
  4. CALCIUM [Concomitant]
  5. ASPIRIN [Concomitant]
  6. VITAMIN D [Concomitant]
  7. CODEINE CONTIN [Concomitant]
  8. PREDNISONE [Concomitant]
  9. CYCLOBENZAPRINE [Concomitant]
     Dosage: DOSE AS NEEDED
  10. ZOPICLONE [Concomitant]

REACTIONS (11)
  - NAUSEA [None]
  - DYSPNOEA [None]
  - FEEDING DISORDER [None]
  - WEIGHT DECREASED [None]
  - ABDOMINAL PAIN [None]
  - CHOLESTASIS [None]
  - RENAL CYST [None]
  - ASTHENIA [None]
  - CHILLS [None]
  - PANCREATIC CYST [None]
  - FATIGUE [None]
